FAERS Safety Report 6448641-4 (Version None)
Quarter: 2009Q4

REPORT INFORMATION
  Report Type: 
  Country: None (occurrence: None)
  Receive Date: 20091119
  Receipt Date: 20091119
  Transmission Date: 20100525
  Serious: Yes (Hospitalization)
  Sender: FDA-Public Use
  Company Number: None

PATIENT
  Sex: Female
  Weight: 97.2 kg

DRUGS (2)
  1. FLUOROURACIL [Suspect]
     Dosage: 6300 MG
     Dates: start: 20091023
  2. ELOXATIN [Suspect]
     Dosage: 400 MG
     Dates: start: 20091026

REACTIONS (8)
  - ABDOMINAL PAIN [None]
  - BLOOD AMYLASE INCREASED [None]
  - CONFUSIONAL STATE [None]
  - DYSPNOEA [None]
  - FEBRILE NEUTROPENIA [None]
  - HYPOTENSION [None]
  - HYPOXIA [None]
  - WHITE BLOOD CELLS STOOL POSITIVE [None]
